FAERS Safety Report 5025300-6 (Version None)
Quarter: 2006Q2

REPORT INFORMATION
  Report Type: 
  Country: None (occurrence: None)
  Receive Date: 20060607
  Receipt Date: 20060517
  Transmission Date: 20061013
  Serious: Yes (Other)
  Sender: FDA-Public Use
  Company Number: US200605003617

PATIENT
  Age: 61 Year
  Sex: Female

DRUGS (3)
  1. FORTEO [Suspect]
     Indication: OSTEOPOROSIS
     Dates: start: 20060101, end: 20060101
  2. FORTEO [Concomitant]
  3. ARIMIDEX [Concomitant]

REACTIONS (3)
  - ARTHROPATHY [None]
  - NEOPLASM MALIGNANT [None]
  - SPINAL DISORDER [None]
